FAERS Safety Report 16458670 (Version 1)
Quarter: 2019Q2

REPORT INFORMATION
  Report Type: Spontaneous
  Country: US (occurrence: US)
  Receive Date: 20190620
  Receipt Date: 20190620
  Transmission Date: 20190711
  Serious: No
  Sender: FDA-Public Use
  Company Number: US-THERAPEUTICSMD-2019TMD00613

PATIENT
  Age: 86 Year
  Sex: Female
  Weight: 70.75 kg

DRUGS (13)
  1. METOPROLOL. [Concomitant]
     Active Substance: METOPROLOL
  2. BABY ASPIRIN [Concomitant]
     Active Substance: ASPIRIN
  3. CINNAMON. [Concomitant]
     Active Substance: CINNAMON
  4. VITAMIN D [Concomitant]
     Active Substance: VITAMIN D NOS
  5. IMVEXXY [Suspect]
     Active Substance: ESTRADIOL
     Indication: URINARY INCONTINENCE
  6. IMVEXXY [Suspect]
     Active Substance: ESTRADIOL
     Indication: VULVOVAGINAL DRYNESS
     Dosage: 10 ?G, 2X/WEEK BEFORE BED
     Route: 067
     Dates: start: 20190228
  7. METHENAMINE HIPPURATE. [Concomitant]
     Active Substance: METHENAMINE HIPPURATE
  8. IMVEXXY [Suspect]
     Active Substance: ESTRADIOL
     Indication: VULVOVAGINAL PRURITUS
  9. PROBIOTIC [Concomitant]
     Active Substance: PROBIOTICS NOS
  10. IMVEXXY [Suspect]
     Active Substance: ESTRADIOL
     Indication: VAGINAL INFECTION
     Dosage: 10 ?G, 1X/DAY BEFORE BED
     Route: 067
     Dates: start: 20190213, end: 20190226
  11. IMVEXXY [Suspect]
     Active Substance: ESTRADIOL
     Indication: VULVOVAGINAL PAIN
  12. IMVEXXY [Suspect]
     Active Substance: ESTRADIOL
     Indication: PH BODY FLUID ABNORMAL
  13. TAMOXIFEN [Concomitant]
     Active Substance: TAMOXIFEN

REACTIONS (2)
  - Urinary incontinence [Not Recovered/Not Resolved]
  - Drug ineffective for unapproved indication [Not Recovered/Not Resolved]

NARRATIVE: CASE EVENT DATE: 2019
